FAERS Safety Report 12939529 (Version 1)
Quarter: 2016Q4

REPORT INFORMATION
  Report Type: Spontaneous
  Country: US (occurrence: US)
  Receive Date: 20161115
  Receipt Date: 20161115
  Transmission Date: 20170207
  Serious: No
  Sender: FDA-Public Use
  Company Number: US-PFIZER INC-2016527956

PATIENT
  Age: 12 Year
  Sex: Female

DRUGS (1)
  1. KERYDIN [Suspect]
     Active Substance: TAVABOROLE
     Dosage: UNK UNK, 1X/DAY

REACTIONS (1)
  - Paronychia [Unknown]
